FAERS Safety Report 10797178 (Version 1)
Quarter: 2015Q1

REPORT INFORMATION
  Report Type: Spontaneous
  Country: US (occurrence: US)
  Receive Date: 20150216
  Receipt Date: 20150216
  Transmission Date: 20150721
  Serious: No
  Sender: FDA-Public Use
  Company Number: US-TEVA-475252USA

PATIENT
  Sex: Female

DRUGS (1)
  1. ALENDRONIC ACID [Suspect]
     Active Substance: ALENDRONIC ACID
     Dates: end: 20140331

REACTIONS (6)
  - Joint swelling [Unknown]
  - Gait disturbance [Unknown]
  - Pain [Unknown]
  - Thyroid function test abnormal [Unknown]
  - Myalgia [Unknown]
  - Liver function test abnormal [Unknown]
